FAERS Safety Report 8668105 (Version 2)
Quarter: 2013Q2

REPORT INFORMATION
  Report Type: Spontaneous
  Country: US (occurrence: US)
  Receive Date: 20120717
  Receipt Date: 20130530
  Transmission Date: 20140414
  Serious: Yes (Hospitalization, Other)
  Sender: FDA-Public Use
  Company Number: US-BAYER-2012-069338

PATIENT
  Age: 51 Year
  Sex: Female
  Weight: 115.65 kg

DRUGS (21)
  1. FLUOXETINE [Concomitant]
     Indication: MENOPAUSAL SYMPTOMS
  2. RESTASIS [Concomitant]
     Dosage: 0.05 %, UNK
     Route: 047
  3. SYSTANE SOLUTION [Concomitant]
     Dosage: 0.4 -0.3% Q2HR IN OPERATIVE EYE
     Route: 047
  4. PREDNISOLON [PREDNISOLONE ACETATE] [Concomitant]
     Dosage: 1 %, QID IN OPERATIVE EYE
     Route: 047
  5. VENTOLIN [Concomitant]
     Indication: BRONCHIAL HYPERREACTIVITY
  6. GLUCOPHAGE [Concomitant]
  7. PRED-FORTE [Concomitant]
  8. ULTRAM [Concomitant]
  9. SUDAFED [Concomitant]
  10. MELATONIN [Concomitant]
  11. PROVENTIL [Concomitant]
  12. METHYLPREDNISOLON [Concomitant]
     Dosage: UNK
     Dates: start: 20120202
  13. METFORMIN [Concomitant]
  14. ALBUTEROL [Concomitant]
  15. YAZ [Suspect]
     Indication: CONTRACEPTION
     Dosage: UNK
     Dates: start: 2006, end: 20100719
  16. YAZ [Suspect]
     Indication: MENOPAUSAL SYMPTOMS
     Dosage: UNK
     Dates: start: 2007, end: 20100719
  17. YAZ [Suspect]
     Indication: POLYCYSTIC OVARIES
  18. GIANVI [Suspect]
     Indication: CONTRACEPTION
     Dosage: UNK
     Dates: start: 20100914, end: 20120218
  19. GIANVI [Suspect]
     Indication: MENOPAUSAL SYMPTOMS
  20. GIANVI [Suspect]
     Indication: POLYCYSTIC OVARIES
  21. FLUOXETINE [Concomitant]
     Indication: AFFECTIVE DISORDER
     Dosage: 10 MG, UNK
     Dates: start: 2011, end: 20120404

REACTIONS (8)
  - Pulmonary embolism [None]
  - Deep vein thrombosis [None]
  - Ventricular hypertrophy [None]
  - Dyspnoea [None]
  - Chest pain [None]
  - Local swelling [None]
  - Anxiety [None]
  - Pulmonary hypertension [None]
